FAERS Safety Report 4503321-7 (Version None)
Quarter: 2004Q4

REPORT INFORMATION
  Report Type: 
  Country: None (occurrence: None)
  Receive Date: 20041112
  Receipt Date: 20041111
  Transmission Date: 20050328
  Serious: Yes (Other)
  Sender: FDA-Public Use
  Company Number: S04-USA-03832-02

PATIENT
  Age: 85 Year
  Sex: Female
  Weight: 56.6996 kg

DRUGS (19)
  1. NAMENDA [Suspect]
     Indication: SENILE DEMENTIA
     Dosage: 5 MG QD PO
     Route: 048
     Dates: start: 20040510, end: 20040516
  2. NAMENDA [Suspect]
     Indication: SENILE DEMENTIA
     Dosage: 10 MG QD PO
     Route: 049
     Dates: start: 20040517, end: 20040523
  3. NAMENDA [Suspect]
     Indication: SENILE DEMENTIA
     Dosage: 15 MG QD PO
     Route: 048
     Dates: start: 20040524, end: 20040530
  4. NAMENDA [Suspect]
     Indication: SENILE DEMENTIA
     Dosage: 10 MG BID  PO
     Route: 048
     Dates: start: 20040510, end: 20040516
  5. NAMENDA [Suspect]
     Indication: SENILE DEMENTIA
     Dosage: 10 MG QHS PO
     Route: 048
     Dates: start: 20040913
  6. DARVOCET-N 100 [Concomitant]
  7. TYLENOL (PARACEAMOL) [Concomitant]
  8. DULCOLAX [Concomitant]
  9. PHENERGAN [Concomitant]
  10. NEXIUM [Concomitant]
  11. MULTI-VITAMIN [Concomitant]
  12. ASPIRIN [Concomitant]
  13. LOPRESSOR [Concomitant]
  14. NOVASC (AMLODIPINE BESILATE) [Concomitant]
  15. PEPCID [Concomitant]
  16. REMERON [Concomitant]
  17. SYNTHROID [Concomitant]
  18. REGLAN [Concomitant]
  19. PROTONIX [Concomitant]

REACTIONS (1)
  - BLOOD GLUCOSE INCREASED [None]
